FAERS Safety Report 9047472 (Version 1)
Quarter: 2013Q1

REPORT INFORMATION
  Report Type: Report from Study
  Country: US (occurrence: US)
  Receive Date: 20130201
  Receipt Date: 20130201
  Transmission Date: 20140127
  Serious: No
  Sender: FDA-Public Use
  Company Number: US-ABBOTT-13P-163-1030410-00

PATIENT
  Age: 43 None
  Sex: Female
  Weight: 51.3 kg

DRUGS (7)
  1. HUMIRA [Suspect]
     Indication: COLITIS ULCERATIVE
     Dates: start: 20121215, end: 20121215
  2. HUMIRA [Suspect]
     Dates: start: 20121229, end: 20121229
  3. CANASA [Concomitant]
     Indication: PRODUCT USED FOR UNKNOWN INDICATION
  4. ROWASA [Concomitant]
     Indication: PRODUCT USED FOR UNKNOWN INDICATION
  5. PROBIOTICS [Concomitant]
     Indication: SUPPLEMENTATION THERAPY
  6. TPAU D ARCO [Concomitant]
     Indication: SUPPLEMENTATION THERAPY
  7. MULTIVITAMIN [Concomitant]
     Indication: SUPPLEMENTATION THERAPY

REACTIONS (16)
  - Fatigue [Not Recovered/Not Resolved]
  - Mood altered [Not Recovered/Not Resolved]
  - Tongue coated [Not Recovered/Not Resolved]
  - Tongue discolouration [Not Recovered/Not Resolved]
  - Dysgeusia [Not Recovered/Not Resolved]
  - Oropharyngeal pain [Not Recovered/Not Resolved]
  - Nasal congestion [Not Recovered/Not Resolved]
  - Pyrexia [Recovered/Resolved]
  - Sinusitis [Not Recovered/Not Resolved]
  - Upper respiratory tract infection [Not Recovered/Not Resolved]
  - Blood iron decreased [Not Recovered/Not Resolved]
  - Dyspnoea [Not Recovered/Not Resolved]
  - Nasopharyngitis [Recovered/Resolved]
  - Influenza like illness [Recovered/Resolved]
  - Arthralgia [Not Recovered/Not Resolved]
  - Lupus-like syndrome [Not Recovered/Not Resolved]
